FAERS Safety Report 4847813-X (Version None)
Quarter: 2005Q4

REPORT INFORMATION
  Report Type: 
  Country: None (occurrence: None)
  Receive Date: 20051207
  Receipt Date: 20050930
  Transmission Date: 20060501
  Serious: Yes (Hospitalization, Disabling, Other)
  Sender: FDA-Public Use
  Company Number: US-MERCK-0510USA01937

PATIENT
  Age: 45 Year
  Sex: Male
  Weight: 136 kg

DRUGS (11)
  1. VIOXX [Suspect]
     Indication: ARTHRALGIA
     Route: 048
     Dates: start: 19990101, end: 20030101
  2. COUMADIN [Concomitant]
     Route: 065
  3. ASPIRIN [Concomitant]
     Route: 065
  4. ACTOS [Concomitant]
     Route: 065
  5. GLUCOPHAGE [Concomitant]
     Route: 065
  6. CRESTOR [Concomitant]
     Route: 065
  7. ZOCOR [Concomitant]
     Route: 065
  8. LEXAPRO [Concomitant]
     Route: 065
  9. XANAX [Concomitant]
     Route: 065
  10. EFFEXOR [Concomitant]
     Route: 065
  11. STARLIX [Concomitant]
     Route: 065

REACTIONS (4)
  - ANGINA PECTORIS [None]
  - CARDIAC DISORDER [None]
  - MYOCARDIAL INFARCTION [None]
  - PULMONARY EMBOLISM [None]
